FAERS Safety Report 17028507 (Version 1)
Quarter: 2019Q4

REPORT INFORMATION
  Report Type: Report from Study
  Country: None (occurrence: US)
  Receive Date: 20191113
  Receipt Date: 20191113
  Transmission Date: 20200122
  Serious: Yes (Other)
  Sender: FDA-Public Use
  Company Number: US-ABBVIE-19K-163-2998761-00

PATIENT
  Age: 57 Year
  Sex: Female

DRUGS (3)
  1. VENCLEXTA [Suspect]
     Active Substance: VENETOCLAX
     Indication: ACUTE MYELOID LEUKAEMIA
     Route: 048
     Dates: start: 20191102, end: 20191102
  2. VENCLEXTA [Suspect]
     Active Substance: VENETOCLAX
     Route: 048
     Dates: start: 20191103, end: 20191103
  3. VENCLEXTA [Suspect]
     Active Substance: VENETOCLAX
     Route: 048
     Dates: start: 20191104

REACTIONS (8)
  - Inappropriate schedule of product administration [Unknown]
  - Lip disorder [Unknown]
  - Nausea [Unknown]
  - Dry mouth [Unknown]
  - Platelet transfusion [Unknown]
  - Nasopharyngitis [Unknown]
  - Malaise [Unknown]
  - Packed red blood cell transfusion [Unknown]

NARRATIVE: CASE EVENT DATE: 201911
